FAERS Safety Report 7469973-7 (Version None)
Quarter: 2011Q2

REPORT INFORMATION
  Report Type: 
  Country: None (occurrence: None)
  Receive Date: 20110429
  Receipt Date: 20110415
  Transmission Date: 20111010
  Serious: Yes (Other)
  Sender: FDA-Public Use
  Company Number: AE 2011-085

PATIENT
  Age: 43 Year
  Sex: Female
  Weight: 73.9363 kg

DRUGS (3)
  1. PRIALT [Suspect]
     Indication: PAIN
     Dosage: 0.225 UG/HR INTRATHECAL
     Route: 037
     Dates: start: 20110221, end: 20110303
  2. PALLADONE [Concomitant]
  3. NOVALGIN [Concomitant]

REACTIONS (4)
  - DYSGEUSIA [None]
  - HALLUCINATION, AUDITORY [None]
  - PERSONALITY CHANGE [None]
  - DEPRESSION [None]
